FAERS Safety Report 7277095-3 (Version None)
Quarter: 2011Q1

REPORT INFORMATION
  Report Type: 
  Country: None (occurrence: None)
  Receive Date: 20110202
  Receipt Date: 20110202
  Transmission Date: 20110831
  Serious: Yes (Other)
  Sender: FDA-Public Use
  Company Number: None

PATIENT
  Age: 74 Year
  Sex: Male
  Weight: 99.7913 kg

DRUGS (1)
  1. ONGLYZA [Suspect]
     Indication: TYPE 2 DIABETES MELLITUS
     Dosage: 5 MG 1 PER DAY
     Dates: start: 20100511

REACTIONS (7)
  - OEDEMA PERIPHERAL [None]
  - SWELLING FACE [None]
  - PRURITUS [None]
  - OROPHARYNGEAL PAIN [None]
  - RASH [None]
  - HEADACHE [None]
  - URTICARIA [None]
